FAERS Safety Report 4690635-3 (Version None)
Quarter: 2005Q2

REPORT INFORMATION
  Report Type: 
  Country: None (occurrence: None)
  Receive Date: 20050615
  Receipt Date: 20050603
  Transmission Date: 20051028
  Serious: Yes (Other)
  Sender: FDA-Public Use
  Company Number: US-GLAXOSMITHKLINE-A0561148A

PATIENT
  Sex: Male

DRUGS (4)
  1. LAMICTAL [Suspect]
     Indication: CONVULSION
     Route: 048
  2. DILANTIN [Suspect]
  3. ZOCOR [Concomitant]
  4. FLOMAX [Concomitant]

REACTIONS (4)
  - BRAIN MALFORMATION [None]
  - CONVULSION [None]
  - COORDINATION ABNORMAL [None]
  - THERAPEUTIC AGENT TOXICITY [None]
